FAERS Safety Report 13935434 (Version 1)
Quarter: 2017Q3

REPORT INFORMATION
  Report Type: Spontaneous
  Country: US (occurrence: US)
  Receive Date: 20170901
  Receipt Date: 20170901
  Transmission Date: 20171127
  Serious: Yes (Life-Threatening, Hospitalization, Disabling, Other)
  Sender: FDA-Public Use
  Company Number: None

PATIENT
  Age: 73 Year
  Sex: Male
  Weight: 85.5 kg

DRUGS (2)
  1. ATORVASTIN [Suspect]
     Active Substance: ATORVASTATIN
     Indication: BLOOD CHOLESTEROL INCREASED
     Route: 048
  2. BABY ASPIRIN [Concomitant]
     Active Substance: ASPIRIN

REACTIONS (18)
  - Cardiac tamponade [None]
  - Gait disturbance [None]
  - Blood magnesium decreased [None]
  - Muscle disorder [None]
  - Cardio-respiratory arrest [None]
  - Blood pressure decreased [None]
  - Speech disorder [None]
  - Renal function test abnormal [None]
  - Dialysis [None]
  - Atrial fibrillation [None]
  - Dysstasia [None]
  - Blood phosphorus decreased [None]
  - Septic shock [None]
  - Pulmonary oedema [None]
  - Fall [None]
  - Urine output decreased [None]
  - Liver function test abnormal [None]
  - Blood creatinine increased [None]

NARRATIVE: CASE EVENT DATE: 20170816
